FAERS Safety Report 7610456-9 (Version None)
Quarter: 2011Q3

REPORT INFORMATION
  Report Type: 
  Country: None (occurrence: None)
  Receive Date: 20110707
  Receipt Date: 20110622
  Transmission Date: 20111222
  Serious: Yes (Death, Hospitalization)
  Sender: FDA-Public Use
  Company Number: 2011MA007930

PATIENT
  Age: 26 Year
  Sex: Female
  Weight: 59 kg

DRUGS (3)
  1. MORPHINE [Suspect]
     Indication: ANAESTHESIA
  2. SUFENTANIL CITRATE [Concomitant]
  3. PROPOFOL [Concomitant]

REACTIONS (4)
  - CARDIAC ARREST [None]
  - OBSTRUCTIVE AIRWAYS DISORDER [None]
  - BRAIN HYPOXIA [None]
  - RESPIRATORY DEPRESSION [None]
